FAERS Safety Report 11559382 (Version 1)
Quarter: 2015Q3

REPORT INFORMATION
  Report Type: Spontaneous
  Country: US (occurrence: None)
  Receive Date: 20150925
  Receipt Date: 20150925
  Transmission Date: 20151125
  Serious: No
  Sender: FDA-Public Use
  Company Number: None

PATIENT
  Age: 19 Year
  Sex: Female
  Weight: 48.08 kg

DRUGS (1)
  1. NEXPLANON [Suspect]
     Active Substance: ETONOGESTREL
     Indication: CONTRACEPTION
     Dosage: 1 TIME PLACEMENT
     Route: 023
     Dates: start: 20150831, end: 20150914

REACTIONS (5)
  - Implant site pruritus [None]
  - Implant site irritation [None]
  - Implant site erythema [None]
  - Implant site oedema [None]
  - Device extrusion [None]

NARRATIVE: CASE EVENT DATE: 20150901
